FAERS Safety Report 24432918 (Version 1)
Quarter: 2024Q4

REPORT INFORMATION
  Report Type: Spontaneous
  Country: ES (occurrence: ES)
  Receive Date: 20241014
  Receipt Date: 20241014
  Transmission Date: 20250115
  Serious: Yes (Life-Threatening, Hospitalization, Other)
  Sender: MERCK
  Company Number: None

PATIENT
  Age: 77 Year
  Sex: Female

DRUGS (2)
  1. TEMOZOLOMIDE [Suspect]
     Active Substance: TEMOZOLOMIDE
     Indication: Glioblastoma
     Dosage: AT A DOSE OF 75 MG/M2 TOTAL DOSE OF 125 MG
     Route: 048
     Dates: start: 20240613, end: 20240724
  2. METAMIZOLE [Suspect]
     Active Substance: METAMIZOLE
     Dosage: 2 GRAM, Q12H
     Route: 042
     Dates: start: 20240723, end: 20240724

REACTIONS (1)
  - Agranulocytosis [Recovered/Resolved]

NARRATIVE: CASE EVENT DATE: 20240723
